FAERS Safety Report 13263021 (Version 1)
Quarter: 2017Q1

REPORT INFORMATION
  Report Type: Spontaneous
  Country: US (occurrence: US)
  Receive Date: 20170223
  Receipt Date: 20170223
  Transmission Date: 20170428
  Serious: No
  Sender: FDA-Public Use
  Company Number: US-JNJFOC-20170211037

PATIENT
  Age: 30 Year
  Sex: Female
  Weight: 78.93 kg

DRUGS (2)
  1. INVEGA SUSTENNA [Suspect]
     Active Substance: PALIPERIDONE PALMITATE
     Indication: SCHIZOPHRENIA
     Route: 030
  2. MELATONIN [Concomitant]
     Active Substance: MELATONIN
     Route: 065

REACTIONS (1)
  - Refusal of treatment by patient [Unknown]

NARRATIVE: CASE EVENT DATE: 20170210
